FAERS Safety Report 18991577 (Version 1)
Quarter: 2021Q1

REPORT INFORMATION
  Report Type: Spontaneous
  Country: US (occurrence: US)
  Receive Date: 20210304
  Receipt Date: 20210304
  Transmission Date: 20210420
  Serious: Yes (Other)
  Sender: FDA-Public Use
  Company Number: None

PATIENT
  Age: 55 Year
  Sex: Female
  Weight: 106.65 kg

DRUGS (1)
  1. THRIVE [Suspect]
     Active Substance: NICOTINE
     Dosage: ?          QUANTITY:2 CAPSULE(S);?
     Route: 048
     Dates: start: 20210127, end: 20210225

REACTIONS (1)
  - Hepatitis [None]

NARRATIVE: CASE EVENT DATE: 20210215
